FAERS Safety Report 19651351 (Version 2)
Quarter: 2021Q3

REPORT INFORMATION
  Report Type: Spontaneous
  Country: US (occurrence: US)
  Receive Date: 20210803
  Receipt Date: 20210809
  Transmission Date: 20211014
  Serious: Yes (Other)
  Sender: FDA-Public Use
  Company Number: US-MYLANLABS-2021M1047356

PATIENT
  Sex: Female

DRUGS (2)
  1. MIACALCIN [Suspect]
     Active Substance: CALCITONIN SALMON
     Indication: OSTEOPOROSIS
     Dosage: UNK
     Route: 045
  2. MIACALCIN [Suspect]
     Active Substance: CALCITONIN SALMON
     Dosage: UNK
     Route: 045

REACTIONS (2)
  - Heart rate increased [Recovered/Resolved]
  - Arrhythmia [Recovered/Resolved]
